FAERS Safety Report 4354114-5 (Version None)
Quarter: 2004Q2

REPORT INFORMATION
  Report Type: 
  Country: None (occurrence: None)
  Receive Date: 20040430
  Receipt Date: 20040323
  Transmission Date: 20050107
  Serious: Yes (Other)
  Sender: FDA-Public Use
  Company Number: 2004-FF-00201FF

PATIENT
  Age: 57 Year
  Sex: Male

DRUGS (10)
  1. ATROVENT [Suspect]
     Indication: RESPIRATORY FAILURE
     Dosage: MCG (MCG, 3 UDV DAILY) IH
     Route: 055
     Dates: start: 20040201
  2. TRENTADIL (BAMIFYLLINE HYDROCHLORIDE) [Concomitant]
  3. BRICANYL [Concomitant]
  4. SOLU-MEDROL [Concomitant]
  5. SYMBICORT (SYMBICORT TURBUHALER ^DRACO^) [Concomitant]
  6. PARIET (RABEPRAZOLE SODIUM) [Concomitant]
  7. BRONCHODUAL [Concomitant]
  8. URBANYL (CLOBAZAM) [Concomitant]
  9. ATARAX [Concomitant]
  10. OXYGEN (OXYGEN) [Concomitant]

REACTIONS (1)
  - OXYGEN CONSUMPTION INCREASED [None]
